FAERS Safety Report 17926000 (Version 1)
Quarter: 2020Q2

REPORT INFORMATION
  Report Type: Report from Study
  Country: CA (occurrence: CA)
  Receive Date: 20200622
  Receipt Date: 20200622
  Transmission Date: 20200714
  Serious: Yes (Hospitalization, Other)
  Sender: FDA-Public Use
  Company Number: CA-JNJFOC-20190821028

PATIENT
  Age: 40 Year
  Sex: Female

DRUGS (2)
  1. STELARA [Suspect]
     Active Substance: USTEKINUMAB
     Route: 058
  2. STELARA [Suspect]
     Active Substance: USTEKINUMAB
     Indication: CROHN^S DISEASE
     Route: 058
     Dates: start: 20180713

REACTIONS (7)
  - Road traffic accident [Recovering/Resolving]
  - Skin laceration [Recovering/Resolving]
  - Paranasal sinus discomfort [Unknown]
  - Sinusitis [Unknown]
  - Facial bones fracture [Recovering/Resolving]
  - Blindness [Unknown]
  - Skull fracture [Recovering/Resolving]

NARRATIVE: CASE EVENT DATE: 20190730
